FAERS Safety Report 24871477 (Version 1)
Quarter: 2025Q1

REPORT INFORMATION
  Report Type: Spontaneous
  Country: CN (occurrence: CN)
  Receive Date: 20250122
  Receipt Date: 20250122
  Transmission Date: 20250408
  Serious: Yes (Hospitalization, Other)
  Sender: SANDOZ
  Company Number: CN-SANDOZ-SDZ2025CN003471

PATIENT
  Age: 70 Year
  Sex: Male

DRUGS (5)
  1. VORICONAZOLE [Suspect]
     Active Substance: VORICONAZOLE
     Indication: Bronchopulmonary aspergillosis
     Route: 048
  2. AMLODIPINE [Concomitant]
     Active Substance: AMLODIPINE BESYLATE
     Indication: Hypertension
     Route: 065
  3. INDOBUFEN [Concomitant]
     Active Substance: INDOBUFEN
     Indication: Product used for unknown indication
     Route: 065
  4. METHYLPREDNISOLONE [Concomitant]
     Active Substance: METHYLPREDNISOLONE
     Indication: Product used for unknown indication
     Dosage: 24 MG, QD
     Route: 065
  5. METOPROLOL [Concomitant]
     Active Substance: METOPROLOL
     Indication: Hypertension
     Route: 065

REACTIONS (4)
  - Respiratory failure [Recovered/Resolved]
  - Pneumonia bacterial [Recovering/Resolving]
  - Cardiac failure [Recovering/Resolving]
  - Renal failure [Recovering/Resolving]
